FAERS Safety Report 9521362 (Version 1)
Quarter: 2013Q3

REPORT INFORMATION
  Report Type: Report from Study
  Country: MX (occurrence: MX)
  Receive Date: 20130913
  Receipt Date: 20130913
  Transmission Date: 20140515
  Serious: Yes (Hospitalization)
  Sender: FDA-Public Use
  Company Number: MX-ROCHE-1273631

PATIENT
  Age: 50 Year
  Sex: Female
  Weight: 83.5 kg

DRUGS (2)
  1. HERCEPTIN [Suspect]
     Indication: BREAST CANCER
     Route: 042
     Dates: start: 20130104, end: 201306
  2. HERCEPTIN [Suspect]
     Route: 042
     Dates: start: 201307

REACTIONS (5)
  - Disease progression [Unknown]
  - Bone pain [Not Recovered/Not Resolved]
  - Paraesthesia [Not Recovered/Not Resolved]
  - Abdominal pain [Not Recovered/Not Resolved]
  - Toothache [Not Recovered/Not Resolved]
